FAERS Safety Report 6711269-2 (Version None)
Quarter: 2010Q2

REPORT INFORMATION
  Report Type: 
  Country: None (occurrence: None)
  Receive Date: 20100505
  Receipt Date: 20100421
  Transmission Date: 20101027
  Serious: Yes (Other)
  Sender: FDA-Public Use
  Company Number: US-WYE-H13650210

PATIENT
  Sex: Female
  Weight: 62.65 kg

DRUGS (13)
  1. PRISTIQ [Suspect]
     Indication: DEPRESSION
     Route: 048
     Dates: start: 20090101, end: 20100101
  2. PRISTIQ [Suspect]
     Route: 048
     Dates: start: 20100101, end: 20100201
  3. PRISTIQ [Suspect]
     Route: 048
     Dates: start: 20100301, end: 20100420
  4. PRISTIQ [Suspect]
     Dosage: 1/2 A TABLET DAILY
     Route: 048
     Dates: start: 20100421
  5. HYDROCHLOROTHIAZIDE [Concomitant]
     Indication: HYPERTENSION
     Dosage: UNKNOWN
  6. L-METHYLFOLATE [Concomitant]
     Dosage: UNKNOWN
  7. HYALURONIC ACID [Concomitant]
     Dosage: UNKNOWN
  8. LORAZEPAM [Concomitant]
     Dosage: 2 MG TABLETS
  9. METOLAZONE [Concomitant]
     Dosage: UNKNOWN
  10. ACYCLOVIR SODIUM [Concomitant]
     Indication: EYE INFECTION
  11. PREDNISOLONE [Concomitant]
     Dosage: 1 % SOLUTION 2X/DAY
  12. CELEXA [Concomitant]
     Dosage: UNKNOWN
     Dates: end: 20091201
  13. AMBIEN [Concomitant]
     Dosage: 10 MG

REACTIONS (28)
  - ABDOMINAL DISTENSION [None]
  - AGITATION [None]
  - ANGER [None]
  - ANORGASMIA [None]
  - ANXIETY [None]
  - BLOOD PRESSURE INCREASED [None]
  - BODY TEMPERATURE FLUCTUATION [None]
  - BRUXISM [None]
  - CHILLS [None]
  - CONSTIPATION [None]
  - DECREASED APPETITE [None]
  - DEPRESSION [None]
  - DRUG WITHDRAWAL SYNDROME [None]
  - DRY MOUTH [None]
  - DYSGEUSIA [None]
  - FEELING ABNORMAL [None]
  - FLATULENCE [None]
  - HEADACHE [None]
  - HYPERHIDROSIS [None]
  - IMPAIRED HEALING [None]
  - INFLUENZA LIKE ILLNESS [None]
  - LIPIDS INCREASED [None]
  - LOSS OF CONSCIOUSNESS [None]
  - MUSCLE SPASMS [None]
  - NAUSEA [None]
  - PRURITUS [None]
  - SUICIDAL IDEATION [None]
  - VISION BLURRED [None]
